FAERS Safety Report 18944615 (Version 1)
Quarter: 2021Q1

REPORT INFORMATION
  Report Type: Spontaneous
  Country: US (occurrence: US)
  Receive Date: 20210226
  Receipt Date: 20210226
  Transmission Date: 20210420
  Serious: Yes (Other)
  Sender: FDA-Public Use
  Company Number: None

PATIENT
  Age: 51 Year
  Sex: Female
  Weight: 65.25 kg

DRUGS (1)
  1. MAVYRET [Suspect]
     Active Substance: GLECAPREVIR\PIBRENTASVIR
     Indication: HEPATITIS C
     Route: 048
     Dates: start: 20210108, end: 20210126

REACTIONS (4)
  - Eye swelling [None]
  - Angioedema [None]
  - Therapeutic product cross-reactivity [None]
  - Lip swelling [None]

NARRATIVE: CASE EVENT DATE: 20210120
